FAERS Safety Report 9837194 (Version 1)
Quarter: 2013Q4

REPORT INFORMATION
  Report Type: Spontaneous
  Country: US (occurrence: None)
  Receive Date: 20131121
  Receipt Date: 20131121
  Transmission Date: 20140711
  Serious: No
  Sender: FDA-Public Use
  Company Number: 1000049130

PATIENT
  Age: 84 Year
  Sex: Female

DRUGS (3)
  1. TUDORZA PRESSAIR (ACLIDINIUM BROMIDE) (400 MICROGRAM, POWDER) [Suspect]
     Indication: CHRONIC OBSTRUCTIVE PULMONARY DISEASE
     Route: 055
     Dates: start: 201308
  2. ADVAIR (FLUTICASONE, SALMETEROL) [Concomitant]
  3. POTASSIUM (POTASSIUM) [Concomitant]

REACTIONS (1)
  - Balance disorder [None]
